FAERS Safety Report 25465581 (Version 1)
Quarter: 2025Q2

REPORT INFORMATION
  Report Type: Report from Study
  Country: ZA (occurrence: ZA)
  Receive Date: 20250623
  Receipt Date: 20250623
  Transmission Date: 20250717
  Serious: Yes (Hospitalization)
  Sender: ROCHE
  Company Number: ZA-ROCHE-10000316771

PATIENT
  Sex: Female

DRUGS (4)
  1. RITUXIMAB [Suspect]
     Active Substance: RITUXIMAB
     Indication: Granulomatosis with polyangiitis
     Route: 065
  2. METHOTREXATE [Concomitant]
     Active Substance: METHOTREXATE
     Dosage: TOXICITY
     Dates: start: 20060201
  3. AZATHIOPRINE [Concomitant]
     Active Substance: AZATHIOPRINE
     Dosage: FAILURE
     Dates: start: 20070712
  4. PREDNISONE [Concomitant]
     Active Substance: PREDNISONE
     Dates: start: 20070712

REACTIONS (4)
  - Platelet count abnormal [Unknown]
  - Granulomatosis with polyangiitis [Unknown]
  - Lung infiltration [Unknown]
  - C-reactive protein abnormal [Unknown]
